FAERS Safety Report 21873629 (Version 2)
Quarter: 2023Q1

REPORT INFORMATION
  Report Type: Report from Study
  Country: US (occurrence: US)
  Receive Date: 20230117
  Receipt Date: 20230120
  Transmission Date: 20230418
  Serious: Yes (Other)
  Sender: FDA-Public Use
  Company Number: US-ABBVIE-4268929

PATIENT
  Sex: Female

DRUGS (1)
  1. HUMIRA [Suspect]
     Active Substance: ADALIMUMAB
     Indication: Rheumatoid arthritis
     Route: 058
     Dates: start: 20180515

REACTIONS (4)
  - Neoplasm malignant [Recovering/Resolving]
  - Blood cholesterol increased [Unknown]
  - Immunosuppression [Unknown]
  - Skin burning sensation [Unknown]
